FAERS Safety Report 10280328 (Version 3)
Quarter: 2014Q3

REPORT INFORMATION
  Report Type: Spontaneous
  Country: JP (occurrence: JP)
  Receive Date: 20140707
  Receipt Date: 20140820
  Transmission Date: 20150326
  Serious: Yes (Hospitalization)
  Sender: FDA-Public Use
  Company Number: JP-ELI_LILLY_AND_COMPANY-JP201406007915

PATIENT
  Age: 64 Year
  Sex: Female

DRUGS (7)
  1. ROZEREM [Suspect]
     Active Substance: RAMELTEON
     Indication: INSOMNIA
     Dosage: 8 MG, QD
     Route: 048
     Dates: start: 20140601, end: 20140623
  2. MEILAX [Concomitant]
     Active Substance: ETHYL LOFLAZEPATE
     Indication: INSOMNIA
     Dosage: 2 MG, QD
     Route: 048
     Dates: start: 20140601, end: 20140623
  3. LORMETAZEPAM [Suspect]
     Active Substance: LORMETAZEPAM
     Indication: INSOMNIA
     Dosage: 1 MG, QD
     Route: 048
     Dates: start: 20140601, end: 20140623
  4. ZYPREXA [Suspect]
     Active Substance: OLANZAPINE
     Indication: BIPOLAR DISORDER
     Dosage: 15 MG, QD
     Route: 048
     Dates: start: 20140601, end: 20140623
  5. TRIAZOLAM. [Suspect]
     Active Substance: TRIAZOLAM
     Indication: INSOMNIA
     Dosage: 0.25 MG, QD
     Route: 048
     Dates: start: 20140601, end: 20140623
  6. OLMETEC [Concomitant]
     Active Substance: OLMESARTAN MEDOXOMIL
     Indication: HYPERTENSION
     Dosage: 10 MG, QD
     Route: 048
     Dates: end: 20140623
  7. IMIDAFENACIN [Concomitant]
     Active Substance: IMIDAFENACIN
     Indication: HYPERTONIC BLADDER
     Dosage: 0.3 MG, QD
     Route: 048
     Dates: end: 20140623

REACTIONS (3)
  - Coma [Recovered/Resolved]
  - Water intoxication [Recovered/Resolved]
  - Pneumonia aspiration [Unknown]

NARRATIVE: CASE EVENT DATE: 20140623
